FAERS Safety Report 11844738 (Version 1)
Quarter: 2015Q4

REPORT INFORMATION
  Report Type: Spontaneous
  Country: CH (occurrence: NL)
  Receive Date: 20151217
  Receipt Date: 20151217
  Transmission Date: 20160305
  Serious: Yes (Disabling)
  Sender: FDA-Public Use
  Company Number: CH-LPDUSPRD-20150989

PATIENT
  Age: 65 Year
  Sex: Female

DRUGS (6)
  1. METOPROLOL SUCCINATE. [Concomitant]
     Active Substance: METOPROLOL SUCCINATE
     Dosage: 50 MG 1 IN 1 D
     Route: 065
  2. FOSINOPRIL SODIUM. [Concomitant]
     Active Substance: FOSINOPRIL SODIUM
     Dosage: 20 MG 1 IN 1 D
     Route: 065
  3. HYDROCHLOROTHIAZIDE. [Concomitant]
     Active Substance: HYDROCHLOROTHIAZIDE
     Dosage: 25 MG 1 IN 1 D
     Route: 065
  4. FERINJECT [Suspect]
     Active Substance: FERRIC CARBOXYMALTOSE
     Dosage: 1000 MG ONCE
     Route: 065
     Dates: start: 20151008
  5. SPIRONOLACTONE. [Concomitant]
     Active Substance: SPIRONOLACTONE
     Dosage: 25 MG 1 IN 1 D
     Route: 065
  6. FLUTICASONE PROPIONATE. [Concomitant]
     Active Substance: FLUTICASONE PROPIONATE
     Dosage: 100 MCG 1 IN 1 D (2 DF)
     Route: 065

REACTIONS (1)
  - Deafness neurosensory [Recovered/Resolved with Sequelae]

NARRATIVE: CASE EVENT DATE: 20151011
